FAERS Safety Report 10163512 (Version 2)
Quarter: 2014Q2

REPORT INFORMATION
  Report Type: Spontaneous
  Country: US (occurrence: US)
  Receive Date: 20140509
  Receipt Date: 20140618
  Transmission Date: 20141212
  Serious: Yes (Other)
  Sender: FDA-Public Use
  Company Number: US-ELI_LILLY_AND_COMPANY-US201405001313

PATIENT
  Sex: Male
  Weight: 63.4 kg

DRUGS (11)
  1. ALIMTA [Suspect]
     Indication: NON-SMALL CELL LUNG CANCER
     Dosage: 680 MG, EVERY 3 WEEKS
     Route: 042
     Dates: start: 20140505
  2. HYDROCODONE [Concomitant]
  3. IBUPROFEN [Concomitant]
  4. FOLIC ACID [Concomitant]
     Dosage: 1 MG, UNKNOWN
     Route: 048
     Dates: start: 20140423
  5. VITAMIN B12                        /00056201/ [Concomitant]
     Dosage: 1 MG, UNKNOWN
     Route: 030
     Dates: start: 20140423
  6. PHENERGAN                          /00033001/ [Concomitant]
  7. ZOFRAN                             /00955301/ [Concomitant]
     Indication: PREMEDICATION
     Dosage: 16 MG, UNKNOWN
  8. EMEND                              /01627301/ [Concomitant]
     Indication: PREMEDICATION
  9. DECADRON                           /00016001/ [Concomitant]
     Indication: PREMEDICATION
     Dosage: 12 MG, UNKNOWN
     Route: 042
  10. DECADRON                           /00016001/ [Concomitant]
     Dosage: 10 MG, UNKNOWN
     Route: 042
  11. CISPLATIN [Concomitant]

REACTIONS (3)
  - Hypoaesthesia [Recovered/Resolved]
  - Pruritus [Recovered/Resolved]
  - Erythema [Recovered/Resolved]
